FAERS Safety Report 11741019 (Version 1)
Quarter: 2015Q4

REPORT INFORMATION
  Report Type: Spontaneous
  Country: US (occurrence: US)
  Receive Date: 20151115
  Receipt Date: 20151115
  Transmission Date: 20160304
  Serious: Yes (Hospitalization)
  Sender: FDA-Public Use
  Company Number: US-JNJCP-30000311871

PATIENT
  Sex: Female
  Weight: 68 kg

DRUGS (7)
  1. BENEFIBER [Concomitant]
     Active Substance: STARCH, WHEAT
     Indication: ROUTINE HEALTH MAINTENANCE
  2. NEUTROGENA RAPID CLEAR ACNE DEFENSE FACE [Suspect]
     Active Substance: SALICYLIC ACID
     Indication: ACNE
     Dosage: ONE FORTH OF A DIME SIZE THREE TIMES IN ONE DAY
     Route: 061
     Dates: start: 20150830, end: 20151013
  3. CALCIUM [Concomitant]
     Active Substance: CALCIUM
     Indication: ROUTINE HEALTH MAINTENANCE
  4. IRON [Concomitant]
     Active Substance: IRON
     Indication: ROUTINE HEALTH MAINTENANCE
  5. VITAMIN B COMPLEX [Concomitant]
     Active Substance: CYANOCOBALAMIN\DEXPANTHENOL\NIACINAMIDE\PYRIDOXINE HYDROCHLORIDE\RIBOFLAVIN 5^-PHOSPHATE SODIUM\THIAMINE HYDROCHLORIDE\VITAMIN B COMPLEX
     Indication: ROUTINE HEALTH MAINTENANCE
  6. MIRENA [Concomitant]
     Active Substance: LEVONORGESTREL
     Indication: CONTRACEPTION
  7. NTG FRESH FOAMING CLEANSER [Concomitant]
     Indication: REMOVAL OF INERT MATTER FROM SKIN OR SUBCUTANEOUS TISSUE
     Dosage: SINCE EIGHT WEEKS

REACTIONS (6)
  - Application site irritation [None]
  - Application site swelling [Recovered/Resolved]
  - Application site erythema [None]
  - Application site hypersensitivity [Unknown]
  - Application site paraesthesia [Recovered/Resolved]
  - Dysphagia [Recovered/Resolved]

NARRATIVE: CASE EVENT DATE: 20150830
